FAERS Safety Report 8582888-6 (Version None)
Quarter: 2012Q3

REPORT INFORMATION
  Report Type: 
  Country: None (occurrence: None)
  Receive Date: 20120809
  Receipt Date: 20120807
  Transmission Date: 20120928
  Serious: Yes (Other)
  Sender: FDA-Public Use
  Company Number: US-TEVA-352675USA

PATIENT
  Sex: Female

DRUGS (1)
  1. CLOPIDOGREL [Suspect]
     Indication: PRODUCT USED FOR UNKNOWN INDICATION

REACTIONS (6)
  - CHEMICAL POISONING [None]
  - ASTHENIA [None]
  - PALPITATIONS [None]
  - VISUAL IMPAIRMENT [None]
  - DYSPNOEA [None]
  - HEADACHE [None]
